FAERS Safety Report 14261553 (Version 1)
Quarter: 2017Q4

REPORT INFORMATION
  Report Type: Spontaneous
  Country: FR (occurrence: FR)
  Receive Date: 20171208
  Receipt Date: 20171208
  Transmission Date: 20180321
  Serious: Yes (Hospitalization, Other)
  Sender: FDA-Public Use
  Company Number: FR-VISTAPHARM, INC.-VER201711-001197

PATIENT
  Age: 64 Year
  Sex: Female

DRUGS (1)
  1. HYDROCODONE AND ACETAMINOPHEN [Suspect]
     Active Substance: ACETAMINOPHEN\HYDROCODONE
     Indication: PRODUCT USED FOR UNKNOWN INDICATION

REACTIONS (9)
  - Hepatitis toxic [Unknown]
  - Toxicity to various agents [Unknown]
  - Coagulopathy [Unknown]
  - Hypothermia [Unknown]
  - Rhabdomyolysis [Unknown]
  - Bradyarrhythmia [Unknown]
  - Hypotension [Unknown]
  - Coma [Recovered/Resolved]
  - Metabolic acidosis [Unknown]
